FAERS Safety Report 24870255 (Version 4)
Quarter: 2025Q3

REPORT INFORMATION
  Report Type: Spontaneous
  Country: US (occurrence: US)
  Receive Date: 20250121
  Receipt Date: 20250927
  Transmission Date: 20251021
  Serious: No
  Sender: SANOFI AVENTIS
  Company Number: US-SA-2025SA017263

PATIENT
  Age: 73 Year
  Sex: Female

DRUGS (2)
  1. DUPIXENT [Suspect]
     Active Substance: DUPILUMAB
     Indication: Dermatitis
     Dosage: 300 MG, QOW
     Route: 058
     Dates: start: 20241113
  2. DUPIXENT [Suspect]
     Active Substance: DUPILUMAB
     Indication: Neurodermatitis

REACTIONS (15)
  - Weight increased [Unknown]
  - Skin mass [Unknown]
  - Nocturia [Unknown]
  - Dry skin [Unknown]
  - Rash pruritic [Unknown]
  - Food craving [Unknown]
  - Increased appetite [Unknown]
  - Skin swelling [Unknown]
  - Sleep disorder due to a general medical condition [Recovered/Resolved]
  - Urticaria [Recovered/Resolved]
  - Pruritus [Unknown]
  - Dry eye [Unknown]
  - Product use in unapproved indication [Unknown]
  - Accidental exposure to product [Unknown]
  - Exposure via skin contact [Unknown]

NARRATIVE: CASE EVENT DATE: 20241113
